FAERS Safety Report 8865506 (Version 1)
Quarter: 2012Q4

REPORT INFORMATION
  Report Type: 
  Country: US (occurrence: US)
  Receive Date: 20121024
  Receipt Date: 20121024
  Transmission Date: 20130627
  Serious: No
  Sender: FDA-Public Use
  Company Number: US-AMGEN-USASP2012003262

PATIENT
  Sex: Female
  Weight: 51.7 kg

DRUGS (5)
  1. ENBREL [Suspect]
     Indication: PRODUCT USED FOR UNKNOWN INDICATION
     Dosage: 50 mg, qwk
     Route: 058
  2. SYNTHROID [Concomitant]
     Dosage: 100 mug, UNK
  3. CALCIUM + VITAMIN D                /01483701/ [Concomitant]
     Dosage: UNK
  4. CELEBREX [Concomitant]
     Dosage: 100 mg, UNK
  5. VITAMIN D /00107901/ [Concomitant]
     Dosage: 50000 IU, UNK

REACTIONS (2)
  - Injection site erythema [Unknown]
  - Injection site urticaria [Unknown]
